FAERS Safety Report 21779065 (Version 3)
Quarter: 2023Q1

REPORT INFORMATION
  Report Type: Spontaneous
  Country: US (occurrence: US)
  Receive Date: 20221226
  Receipt Date: 20230103
  Transmission Date: 20230418
  Serious: No
  Sender: FDA-Public Use
  Company Number: US-002147023-NVSC2022US298536

PATIENT
  Sex: Female

DRUGS (2)
  1. PREDNISOLONE ACETATE [Suspect]
     Active Substance: PREDNISOLONE ACETATE
     Indication: Product used for unknown indication
     Dosage: 5 ML, BID (BOTTLE)
     Route: 065
     Dates: start: 20221222
  2. PREDNISOLONE ACETATE [Suspect]
     Active Substance: PREDNISOLONE ACETATE
     Dosage: 5 ML, BID (BOTTLE)
     Route: 065
     Dates: start: 20221223

REACTIONS (2)
  - Product taste abnormal [Unknown]
  - Nausea [Unknown]
